FAERS Safety Report 4386506-2 (Version None)
Quarter: 2004Q2

REPORT INFORMATION
  Report Type: 
  Country: None (occurrence: None)
  Receive Date: 20040629
  Receipt Date: 20040420
  Transmission Date: 20050107
  Serious: Yes (Death, Hospitalization)
  Sender: FDA-Public Use
  Company Number: DE-MERCK-0404DEU00107

PATIENT
  Age: 23 Year
  Sex: Female
  Weight: 120 kg

DRUGS (5)
  1. BECLOMETHASONE DIPROPIONATE [Concomitant]
     Indication: ASTHMA
     Route: 055
  2. CHLORMADINONE ACETATE AND MESTRANOL [Suspect]
     Indication: CONTRACEPTION
     Route: 048
     Dates: start: 19840101, end: 20030501
  3. FENOTEROL HYDROBROMIDE [Concomitant]
     Indication: ASTHMA
     Route: 055
     Dates: start: 19950101, end: 20030201
  4. FORMOTEROL FUMARATE [Concomitant]
     Indication: ASTHMA
     Route: 055
     Dates: start: 19981201
  5. SINGULAIR [Suspect]
     Indication: ASTHMA
     Route: 048
     Dates: start: 19990601, end: 20030201

REACTIONS (5)
  - ABORTION MISSED [None]
  - BRONCHITIS ACUTE [None]
  - DRUG EXPOSURE DURING PREGNANCY [None]
  - DRUG INTERACTION [None]
  - HEPATIC LESION [None]
